FAERS Safety Report 25500877 (Version 1)
Quarter: 2025Q3

REPORT INFORMATION
  Report Type: Spontaneous
  Country: BR (occurrence: BR)
  Receive Date: 20250701
  Receipt Date: 20250701
  Transmission Date: 20251021
  Serious: Yes (Hospitalization, Other)
  Sender: BAYER HEALTHCARE PHARMACEUTICALS INC.
  Company Number: BR-BAYER-2025A084417

PATIENT
  Sex: Male

DRUGS (9)
  1. NEXAVAR [Suspect]
     Active Substance: SORAFENIB
     Indication: Hepatic cancer
     Dosage: 400 MG, BID
     Dates: start: 202006, end: 2021
  2. NEXAVAR [Suspect]
     Active Substance: SORAFENIB
     Indication: Metastases to lung
     Dosage: 200 MG, BID
     Dates: start: 20250618
  3. EVEROLIMUS [Suspect]
     Active Substance: EVEROLIMUS
     Indication: Liver transplant
     Dates: start: 202106
  4. URSODIOL [Concomitant]
     Active Substance: URSODIOL
     Indication: Skin discolouration
  5. URSODIOL [Concomitant]
     Active Substance: URSODIOL
     Indication: Blood bilirubin abnormal
  6. VITAMIN B COMPLEX [Concomitant]
     Active Substance: CYANOCOBALAMIN\DEXPANTHENOL\NIACINAMIDE\PYRIDOXINE HYDROCHLORIDE\RIBOFLAVIN 5^-PHOSPHATE SODIUM\THIA
     Indication: Vitamin supplementation
  7. IRON [Concomitant]
     Active Substance: IRON
     Indication: Vitamin supplementation
  8. TENOFOVIR [Concomitant]
     Active Substance: TENOFOVIR
     Indication: Hepatitis B
  9. SODIUM BICARBONATE [Concomitant]
     Active Substance: SODIUM BICARBONATE
     Indication: Oxygen saturation decreased

REACTIONS (9)
  - Anaemia [Recovered/Resolved]
  - Metastases to lung [Not Recovered/Not Resolved]
  - Liver transplant rejection [Recovered/Resolved]
  - Renal disorder [Not Recovered/Not Resolved]
  - Anxiety [Unknown]
  - Liver transplant [None]
  - White coat hypertension [None]
  - Hypertension [Not Recovered/Not Resolved]
  - Drug intolerance [Unknown]

NARRATIVE: CASE EVENT DATE: 20210101
